FAERS Safety Report 11218351 (Version 1)
Quarter: 2015Q2

REPORT INFORMATION
  Report Type: Spontaneous
  Country: CA (occurrence: None)
  Receive Date: 20150623
  Receipt Date: 20150623
  Transmission Date: 20150821
  Serious: Yes (Other)
  Sender: FDA-Public Use
  Company Number: CO-PL-CA-2015-075

PATIENT
  Age: 76 Year
  Sex: Female

DRUGS (25)
  1. ACTEMRA [Suspect]
     Active Substance: TOCILIZUMAB
     Indication: PRODUCT USED FOR UNKNOWN INDICATION
     Dates: end: 20150203
  2. RITUXAN (UNKNOWN) (RITUXIMAB) [Concomitant]
  3. LOPERAMIDE [Concomitant]
     Active Substance: LOPERAMIDE
  4. VAGIFEM (UNKNOWN) (ESTRADIOL) [Concomitant]
  5. DILAUDID [Concomitant]
     Active Substance: HYDROMORPHONE HYDROCHLORIDE
  6. LASIX (UNKNOWN) (FUROSEMIDE) [Concomitant]
  7. ABATACEPT [Concomitant]
     Active Substance: ABATACEPT
  8. SYNTHROID (UNKNOWN) (LEVOTHYROXINE SODIUM) [Concomitant]
  9. PANTOLOC (UNKNOWN) (PANTOPRAZOLE SODIUM SESQUIHYDRATE) [Concomitant]
  10. ENBREL [Suspect]
     Active Substance: ETANERCEPT
     Indication: RHEUMATOID ARTHRITIS
     Dates: start: 200205, end: 200409
  11. REMICADE [Suspect]
     Active Substance: INFLIXIMAB
     Indication: PRODUCT USED FOR UNKNOWN INDICATION
     Dates: start: 200407, end: 2005
  12. METHOTREXATE (METHOTREXATE SODIUM) [Suspect]
     Active Substance: METHOTREXATE SODIUM
     Indication: PRODUCT USED FOR UNKNOWN INDICATION
     Dates: start: 1995, end: 200411
  13. ATIVAN (UNKNOWN) (LORAZEPAM) [Concomitant]
  14. PLAQUENIL [Suspect]
     Active Substance: HYDROXYCHLOROQUINE SULFATE
     Indication: PRODUCT USED FOR UNKNOWN INDICATION
  15. ORENCIA [Suspect]
     Active Substance: ABATACEPT
     Indication: PRODUCT USED FOR UNKNOWN INDICATION
  16. ENABLEX (UNKNOWN) (DARIFENACIN) [Concomitant]
  17. XELJANZ [Suspect]
     Active Substance: TOFACITINIB CITRATE
     Indication: PRODUCT USED FOR UNKNOWN INDICATION
  18. MYOCRISIN (SODIUM AUROTHIOMALATE) [Suspect]
     Active Substance: GOLD SODIUM THIOMALATE
     Indication: PRODUCT USED FOR UNKNOWN INDICATION
  19. ARAVA [Suspect]
     Active Substance: LEFLUNOMIDE
     Indication: PRODUCT USED FOR UNKNOWN INDICATION
     Dates: start: 200408
  20. HUMIRA [Suspect]
     Active Substance: ADALIMUMAB
     Indication: PRODUCT USED FOR UNKNOWN INDICATION
     Dates: start: 2005, end: 2006
  21. KINERET (UNKNOWN) (ANAKINRA) [Concomitant]
  22. BENADRYL (UNKNOWN) (DIPHENHYDRAMINE HYDROCHLORIDE) [Concomitant]
  23. NORFLEX (UNKNOWN) (ORPHENADRINE CITRATE) [Concomitant]
  24. OMNARIS (UNKNOWN) (CICLESONIDE) [Concomitant]
  25. CORTISONE [Concomitant]
     Active Substance: CORTISONE\HYDROCORTISONE

REACTIONS (16)
  - Synovitis [None]
  - Tenderness [None]
  - Infection susceptibility increased [None]
  - Arthritis [None]
  - Leukopenia [None]
  - Peripheral swelling [None]
  - Pneumonia viral [None]
  - Joint swelling [None]
  - Blood cholesterol increased [None]
  - Herpes zoster [None]
  - Anaemia [None]
  - Drug effect decreased [None]
  - Fibromyalgia [None]
  - Liver function test abnormal [None]
  - Drug ineffective [None]
  - Arthralgia [None]

NARRATIVE: CASE EVENT DATE: 2015
